FAERS Safety Report 20176126 (Version 7)
Quarter: 2024Q2

REPORT INFORMATION
  Report Type: Report from Study
  Country: US (occurrence: US)
  Receive Date: 20211213
  Receipt Date: 20240416
  Transmission Date: 20240716
  Serious: Yes (Other)
  Sender: FDA-Public Use
  Company Number: US-TAKEDA-2019TUS019292

PATIENT
  Age: 76 Year
  Sex: Female
  Weight: 67 kg

DRUGS (33)
  1. PONATINIB [Suspect]
     Active Substance: PONATINIB
     Indication: Chronic myeloid leukaemia (in remission)
     Dosage: 30 MILLIGRAM, QD
     Route: 048
     Dates: start: 201903
  2. PONATINIB [Suspect]
     Active Substance: PONATINIB
     Dosage: 15 MILLIGRAM, QD
     Route: 065
  3. PONATINIB [Suspect]
     Active Substance: PONATINIB
     Dosage: 30 MILLIGRAM
     Route: 048
  4. PONATINIB [Suspect]
     Active Substance: PONATINIB
     Dosage: 15 MILLIGRAM, QOD
     Route: 065
  5. PONATINIB [Suspect]
     Active Substance: PONATINIB
     Dosage: 30 MILLIGRAM, QOD
     Route: 065
  6. PONATINIB [Suspect]
     Active Substance: PONATINIB
     Dosage: 15 MILLIGRAM, QOD
     Route: 065
  7. PONATINIB [Suspect]
     Active Substance: PONATINIB
     Dosage: 30 MILLIGRAM, QOD
     Route: 065
  8. LYRICA [Concomitant]
     Active Substance: PREGABALIN
     Dosage: UNK
     Route: 065
  9. ZESTRIL [Concomitant]
     Active Substance: LISINOPRIL
     Dosage: UNK
     Route: 065
  10. INDERAL [Concomitant]
     Active Substance: PROPRANOLOL HYDROCHLORIDE
     Dosage: UNK
     Route: 065
  11. LAMICTAL [Concomitant]
     Active Substance: LAMOTRIGINE
     Dosage: UNK
     Route: 065
  12. REMERON [Concomitant]
     Active Substance: MIRTAZAPINE
     Dosage: UNK
     Route: 065
  13. CITRACAL PLUS D [Concomitant]
     Dosage: UNK
     Route: 065
  14. MIRALAX [Concomitant]
     Active Substance: POLYETHYLENE GLYCOL 3350
     Dosage: UNK
     Route: 065
  15. CLARITIN [Concomitant]
     Active Substance: LORATADINE
     Dosage: UNK
  16. MUCINEX [Concomitant]
     Active Substance: GUAIFENESIN
     Dosage: UNK
     Route: 065
  17. AZELASTINE HYDROCHLORIDE [Concomitant]
     Active Substance: AZELASTINE HYDROCHLORIDE
     Dosage: UNK
     Route: 065
  18. FLONASE [Concomitant]
     Active Substance: FLUTICASONE PROPIONATE
     Dosage: UNK
     Route: 065
  19. PRIMIDONE [Concomitant]
     Active Substance: PRIMIDONE
     Dosage: UNK
     Route: 065
  20. MAGNESIUM OXIDE [Concomitant]
     Active Substance: MAGNESIUM OXIDE
     Dosage: UNK
     Route: 065
  21. AMLODIPINE BESYLATE [Concomitant]
     Active Substance: AMLODIPINE BESYLATE
     Dosage: UNK
     Route: 065
  22. ZENPEP [Concomitant]
     Active Substance: PANCRELIPASE AMYLASE\PANCRELIPASE LIPASE\PANCRELIPASE PROTEASE
     Dosage: UNK
     Route: 065
  23. LAMOTRIGINE [Concomitant]
     Active Substance: LAMOTRIGINE
     Dosage: UNK
     Route: 065
  24. ZYRTEC [Concomitant]
     Active Substance: CETIRIZINE HYDROCHLORIDE
     Dosage: UNK
     Route: 065
  25. VITAMIN D3 [Concomitant]
     Active Substance: CHOLECALCIFEROL
     Dosage: UNK
     Route: 065
  26. HYDRALAZINE HCL [Concomitant]
     Active Substance: HYDRALAZINE HYDROCHLORIDE
     Dosage: UNK
     Route: 065
  27. CALTRATE WITH VITAMIN D [Concomitant]
     Active Substance: CALCIUM CARBONATE\CHOLECALCIFEROL
     Dosage: UNK
     Route: 065
  28. MIRTAZAPINE [Concomitant]
     Active Substance: MIRTAZAPINE
     Dosage: UNK
     Route: 065
  29. LISINOPRIL [Concomitant]
     Active Substance: LISINOPRIL
     Dosage: UNK
     Route: 065
  30. PANTOPRAZOLE SODIUM [Concomitant]
     Active Substance: PANTOPRAZOLE SODIUM
     Dosage: UNK
     Route: 065
  31. FAMOTIDINE [Concomitant]
     Active Substance: FAMOTIDINE
     Dosage: UNK
     Route: 065
  32. ESCITALOPRAM OXALATE [Concomitant]
     Active Substance: ESCITALOPRAM OXALATE
     Dosage: UNK
     Route: 065
  33. CHLORTHALIDONE [Concomitant]
     Active Substance: CHLORTHALIDONE
     Dosage: UNK
     Route: 065

REACTIONS (13)
  - Hip fracture [Unknown]
  - Intervertebral disc degeneration [Unknown]
  - Vitamin B12 deficiency [Unknown]
  - COVID-19 [Unknown]
  - Gastrointestinal disorder [Unknown]
  - Fall [Unknown]
  - Gastrooesophageal reflux disease [Recovering/Resolving]
  - Alopecia [Not Recovered/Not Resolved]
  - Dry skin [Not Recovered/Not Resolved]
  - Blood pressure increased [Unknown]
  - Rash [Unknown]
  - Fatigue [Unknown]
  - Off label use [Unknown]

NARRATIVE: CASE EVENT DATE: 20190301
